FAERS Safety Report 17013832 (Version 1)
Quarter: 2019Q4

REPORT INFORMATION
  Report Type: Spontaneous
  Country: US (occurrence: US)
  Receive Date: 20191111
  Receipt Date: 20191111
  Transmission Date: 20200122
  Serious: No
  Sender: FDA-Public Use
  Company Number: US-JNJFOC-20191106520

PATIENT
  Sex: Male
  Weight: 90.8 kg

DRUGS (2)
  1. MENS ROGAINE EXTRA STRENGTH [Suspect]
     Active Substance: MINOXIDIL
     Indication: ALOPECIA
     Dosage: HALF OF THE CUP. TWICE A DAY FOR THE FIRST WEEK
     Route: 061
  2. MENS ROGAINE EXTRA STRENGTH [Suspect]
     Active Substance: MINOXIDIL
     Dosage: HALF OF THE CUP. TWICE A DAY FOR THE FIRST WEEK AND THEN AFTER PIRATICALLY
     Route: 061

REACTIONS (1)
  - Application site rash [Recovering/Resolving]
